FAERS Safety Report 9695718 (Version 1)
Quarter: 2013Q4

REPORT INFORMATION
  Report Type: Spontaneous
  Country: US (occurrence: None)
  Receive Date: 20131118
  Receipt Date: 20131118
  Transmission Date: 20140711
  Serious: Yes (Hospitalization, Other)
  Sender: FDA-Public Use
  Company Number: None

PATIENT
  Age: 19 Year
  Sex: Female
  Weight: 61.24 kg

DRUGS (1)
  1. MIRENA IUD [Suspect]

REACTIONS (4)
  - Abdominal pain [None]
  - Abortion spontaneous [None]
  - Pregnancy with contraceptive device [None]
  - Exposure during pregnancy [None]
